FAERS Safety Report 12274334 (Version 1)
Quarter: 2016Q2

REPORT INFORMATION
  Report Type: Spontaneous
  Country: US (occurrence: US)
  Receive Date: 20160415
  Receipt Date: 20160415
  Transmission Date: 20160815
  Serious: No
  Sender: FDA-Public Use
  Company Number: US-ALLERGAN-1511884US

PATIENT
  Sex: Female
  Weight: 58.96 kg

DRUGS (3)
  1. RETINOL [Concomitant]
     Active Substance: RETINOL
     Indication: DRUG THERAPY
     Route: 061
  2. LATISSE [Suspect]
     Active Substance: BIMATOPROST
     Indication: MADAROSIS
     Dosage: 1 GTT, UNK
     Route: 003
  3. LISINOPRIL. [Concomitant]
     Active Substance: LISINOPRIL
     Indication: HYPERTENSION

REACTIONS (2)
  - Skin hyperpigmentation [Not Recovered/Not Resolved]
  - Blepharal pigmentation [Not Recovered/Not Resolved]
